FAERS Safety Report 10470444 (Version 1)
Quarter: 2014Q3

REPORT INFORMATION
  Report Type: Spontaneous
  Country: US (occurrence: None)
  Receive Date: 20140905
  Receipt Date: 20140905
  Transmission Date: 20150326
  Serious: Yes (Hospitalization)
  Sender: FDA-Public Use
  Company Number: A-NJ2014-99165

PATIENT
  Age: 12 Year
  Sex: Male

DRUGS (4)
  1. SILDENAFIL (SIDENAFIL0 [Concomitant]
  2. COUMADIN [Concomitant]
     Active Substance: WARFARIN SODIUM
  3. TRACLEER [Suspect]
     Active Substance: BOSENTAN\BOSENTAN MONOHYDRATE
     Indication: PULMONARY ARTERIAL HYPERTENSION
     Route: 048
  4. VELETRI [Suspect]
     Active Substance: EPOPROSTENOL
     Indication: PULMONARY ARTERIAL HYPERTENSION
     Dosage: 73 NG/KG, PER MIN, INTRAVENOUS
     Route: 042
     Dates: start: 20140418

REACTIONS (2)
  - Right ventricular failure [None]
  - Pulmonary hypertension [None]

NARRATIVE: CASE EVENT DATE: 20140425
